FAERS Safety Report 12454672 (Version 1)
Quarter: 2016Q2

REPORT INFORMATION
  Report Type: Spontaneous
  Country: TR (occurrence: TR)
  Receive Date: 20160610
  Receipt Date: 20160610
  Transmission Date: 20160815
  Serious: Yes (Other)
  Sender: FDA-Public Use
  Company Number: TR-BRISTOL-MYERS SQUIBB COMPANY-BMS-2016-043584

PATIENT
  Age: 66 Year
  Sex: Female

DRUGS (1)
  1. WARFARIN SODIUM. [Suspect]
     Active Substance: WARFARIN SODIUM
     Indication: EMBOLISM
     Route: 065

REACTIONS (3)
  - Retroperitoneal haematoma [Recovered/Resolved]
  - Drug interaction [Unknown]
  - Haemorrhage subcutaneous [Recovered/Resolved]
